FAERS Safety Report 17001900 (Version 4)
Quarter: 2019Q4

REPORT INFORMATION
  Report Type: Spontaneous
  Country: US (occurrence: US)
  Receive Date: 20191106
  Receipt Date: 20191217
  Transmission Date: 20200122
  Serious: No
  Sender: FDA-Public Use
  Company Number: US-PFIZER INC-2019456974

PATIENT
  Age: 78 Year
  Sex: Male
  Weight: 89.81 kg

DRUGS (2)
  1. LATANOPROST. [Suspect]
     Active Substance: LATANOPROST
     Indication: GLAUCOMA
     Dosage: 1 GTT, 1X/DAY ((EVERYDAY, IN THE MORNING))
  2. ALPHAGAN P [Concomitant]
     Active Substance: BRIMONIDINE TARTRATE
     Indication: GLAUCOMA
     Dosage: UNK

REACTIONS (3)
  - Incorrect dose administered [Unknown]
  - Arthritis [Unknown]
  - Intentional product use issue [Unknown]
